FAERS Safety Report 19965415 (Version 1)
Quarter: 2021Q4

REPORT INFORMATION
  Report Type: Spontaneous
  Country: US (occurrence: US)
  Receive Date: 20211018
  Receipt Date: 20211018
  Transmission Date: 20220303
  Serious: Yes (Other)
  Sender: FDA-Public Use
  Company Number: US-JNJFOC-20211014117

PATIENT

DRUGS (2)
  1. NEUTROGENA INVISIBLE DAILY DEFENSE SUNSCREEN BROAD SPECTRUM SPF 60 PLU [Suspect]
     Active Substance: AVOBENZONE\HOMOSALATE\OCTISALATE\OCTOCRYLENE
     Indication: Product used for unknown indication
     Route: 061
  2. AVEENO PROTECT PLUS REFRESH SUNSCREEN BROAD SPECTRUM BODY SPF 60 [Suspect]
     Active Substance: AVOBENZONE\HOMOSALATE\OCTISALATE\OCTOCRYLENE
     Indication: Product used for unknown indication
     Route: 061

REACTIONS (1)
  - Neoplasm malignant [Unknown]
